FAERS Safety Report 5912599-4 (Version None)
Quarter: 2008Q4

REPORT INFORMATION
  Report Type: 
  Country: None (occurrence: None)
  Receive Date: 20081008
  Receipt Date: 20080930
  Transmission Date: 20090506
  Serious: Yes (Other)
  Sender: FDA-Public Use
  Company Number: AU-AMGEN-US211597

PATIENT
  Sex: Male

DRUGS (6)
  1. PANITUMUMAB [Suspect]
     Indication: COLORECTAL CANCER
     Route: 042
     Dates: start: 20061102, end: 20070110
  2. FLUOROURACIL [Concomitant]
     Route: 042
  3. LEUCOVORIN CALCIUM [Concomitant]
     Route: 042
  4. IRINOTECAN HYDROCHLORIDE [Concomitant]
     Route: 042
  5. LOPERAMIDE HYDROCHLORIDE [Concomitant]
     Route: 048
     Dates: start: 20020101
  6. CEFTRIAXONE [Concomitant]
     Route: 042
     Dates: start: 20070123, end: 20070124

REACTIONS (1)
  - INTERSTITIAL LUNG DISEASE [None]
